FAERS Safety Report 4367309-1 (Version None)
Quarter: 2004Q2

REPORT INFORMATION
  Report Type: 
  Country: None (occurrence: None)
  Receive Date: 20040524
  Receipt Date: 20040512
  Transmission Date: 20050107
  Serious: Yes (Other)
  Sender: FDA-Public Use
  Company Number: THQ2004A00464

PATIENT
  Sex: Female

DRUGS (1)
  1. ACTOS [Suspect]
     Dosage: 45 MG

REACTIONS (3)
  - CARDIOMEGALY [None]
  - PERICARDITIS [None]
  - WEIGHT INCREASED [None]
